FAERS Safety Report 6297711-2 (Version None)
Quarter: 2009Q3

REPORT INFORMATION
  Report Type: 
  Country: None (occurrence: None)
  Receive Date: 20090805
  Receipt Date: 20090726
  Transmission Date: 20100115
  Serious: Yes (Other)
  Sender: FDA-Public Use
  Company Number: IL-AMGEN-UK357534

PATIENT
  Age: 28 Year
  Sex: Male

DRUGS (11)
  1. NEULASTA [Suspect]
     Indication: CHEMOTHERAPY
     Route: 058
  2. ENOXAPARIN SODIUM [Concomitant]
  3. PREDNISONE TAB [Concomitant]
  4. PROCARBAZINE [Concomitant]
  5. VINCRISTINE [Concomitant]
  6. CYCLOPHOSPHAMIDE [Concomitant]
  7. DOXORUBICIN HCL [Concomitant]
  8. ETOPOSIDE [Concomitant]
  9. BLEOMYCIN SULFATE [Concomitant]
  10. VINBLASTINE [Concomitant]
  11. DACARBAZINE [Concomitant]

REACTIONS (3)
  - GROIN PAIN [None]
  - OSTEONECROSIS [None]
  - WHITE BLOOD CELL COUNT INCREASED [None]
